FAERS Safety Report 9616755 (Version 1)
Quarter: 2013Q4

REPORT INFORMATION
  Report Type: Spontaneous
  Country: US (occurrence: US)
  Receive Date: 20131011
  Receipt Date: 20131011
  Transmission Date: 20140711
  Serious: No
  Sender: FDA-Public Use
  Company Number: US-TEVA-437266USA

PATIENT
  Age: 55 Year
  Sex: Female
  Weight: 50.85 kg

DRUGS (3)
  1. AZILECT [Suspect]
     Indication: PARKINSON^S DISEASE
  2. SINEMET [Concomitant]
     Indication: PARKINSON^S DISEASE
     Dates: start: 2013
  3. BOTOX [Concomitant]
     Dates: start: 201309

REACTIONS (3)
  - Headache [Not Recovered/Not Resolved]
  - Dry mouth [Not Recovered/Not Resolved]
  - Nausea [Not Recovered/Not Resolved]
